FAERS Safety Report 8595820-6 (Version None)
Quarter: 2012Q3

REPORT INFORMATION
  Report Type: 
  Country: None (occurrence: None)
  Receive Date: 20120815
  Receipt Date: 20120801
  Transmission Date: 20120928
  Serious: No
  Sender: FDA-Public Use
  Company Number: US-ASTRAZENECA-2012SE54573

PATIENT
  Age: 74 Year
  Sex: Female
  Weight: 48.5 kg

DRUGS (5)
  1. SYMBICORT [Suspect]
     Indication: CHRONIC OBSTRUCTIVE PULMONARY DISEASE
     Dosage: TWO TIMES A DAY
     Route: 055
     Dates: start: 20100101
  2. SPIRIVA [Concomitant]
  3. VENTOLIN [Concomitant]
  4. VYCODAN [Concomitant]
     Indication: ARTHRALGIA
  5. PRILOSEC [Suspect]
     Indication: HELICOBACTER GASTRITIS
     Route: 048
     Dates: start: 20060101

REACTIONS (9)
  - CATARACT [None]
  - SINUS CONGESTION [None]
  - PNEUMONIA [None]
  - WEIGHT DECREASED [None]
  - DRY EYE [None]
  - DECREASED APPETITE [None]
  - DRUG ERUPTION [None]
  - NASAL CONGESTION [None]
  - SINUS HEADACHE [None]
